FAERS Safety Report 9648917 (Version 1)
Quarter: 2013Q4

REPORT INFORMATION
  Report Type: Spontaneous
  Country: DE (occurrence: DE)
  Receive Date: 20131028
  Receipt Date: 20131028
  Transmission Date: 20140711
  Serious: Yes (Other)
  Sender: FDA-Public Use
  Company Number: DE-SA-2013SA108453

PATIENT
  Sex: 0

DRUGS (1)
  1. LANTUS [Suspect]
     Indication: SUICIDAL IDEATION
     Route: 065

REACTIONS (1)
  - Suicidal ideation [Unknown]
